FAERS Safety Report 11127274 (Version 1)
Quarter: 2015Q2

REPORT INFORMATION
  Report Type: Spontaneous
  Country: US (occurrence: None)
  Receive Date: 20150520
  Receipt Date: 20150520
  Transmission Date: 20150821
  Serious: Yes (Other)
  Sender: FDA-Public Use
  Company Number: None

PATIENT
  Age: 52 Year
  Sex: Female

DRUGS (1)
  1. AVONEX [Suspect]
     Active Substance: INTERFERON BETA-1A
     Dosage: STRENGTH: 30MCG  FREQUENCY: WEEKLY

REACTIONS (3)
  - Myalgia [None]
  - Sinusitis [None]
  - Bone pain [None]

NARRATIVE: CASE EVENT DATE: 20150510
